FAERS Safety Report 13117464 (Version 2)
Quarter: 2017Q1

REPORT INFORMATION
  Report Type: Report from Study
  Country: JP (occurrence: JP)
  Receive Date: 20170116
  Receipt Date: 20170127
  Transmission Date: 20170428
  Serious: Yes (Death)
  Sender: FDA-Public Use
  Company Number: JP-ASTRAZENECA-2017SE04051

PATIENT
  Age: 28244 Day
  Sex: Female

DRUGS (24)
  1. TAGRISSO [Suspect]
     Active Substance: OSIMERTINIB
     Indication: NON-SMALL CELL LUNG CANCER
     Route: 048
     Dates: start: 20150217, end: 20150821
  2. TAGRISSO [Suspect]
     Active Substance: OSIMERTINIB
     Indication: NON-SMALL CELL LUNG CANCER
     Route: 048
     Dates: start: 20150829, end: 20160818
  3. REBAMIPIDE [Concomitant]
     Active Substance: REBAMIPIDE
     Indication: GASTRITIS PROPHYLAXIS
     Dosage: 100.0MG AS REQUIRED
     Route: 048
     Dates: start: 20160708
  4. MEDICON [Concomitant]
     Active Substance: DEXTROMETHORPHAN HYDROBROMIDE
     Indication: LUNG NEOPLASM MALIGNANT
     Route: 048
     Dates: start: 20160527
  5. TAGRISSO [Suspect]
     Active Substance: OSIMERTINIB
     Indication: NON-SMALL CELL LUNG CANCER
     Route: 048
     Dates: start: 20170106, end: 20170113
  6. PREDONINE [Concomitant]
     Active Substance: PREDNISOLONE
     Indication: BLEPHARITIS
     Dosage: 3 TABLE SPOON AS REQUIERED
     Route: 047
  7. SP-TROCHES [Concomitant]
     Indication: NASOPHARYNGITIS
     Dosage: 1.0DF AS REQUIRED
     Route: 048
     Dates: start: 20160930
  8. FLOMOX [Concomitant]
     Active Substance: CEFCAPENE PIVOXIL HYDROCHLORIDE HYDRATE
     Indication: NASOPHARYNGITIS
     Route: 048
     Dates: start: 20160930
  9. AMINOPHYLLINE. [Concomitant]
     Active Substance: AMINOPHYLLINE
     Indication: DECREASED APPETITE
     Route: 042
  10. ATORVASTATIN [Concomitant]
     Active Substance: ATORVASTATIN
     Indication: PARONYCHIA
     Route: 048
  11. TSUMURA BAKUMON DOUTOU EKISU [Concomitant]
     Indication: NASOPHARYNGITIS
     Route: 048
     Dates: start: 20160930
  12. MYSER [Concomitant]
     Active Substance: DIFLUPREDNATE
     Indication: PARONYCHIA
     Dosage: 1 TABLE SPOON AS REQUIERED
     Route: 003
     Dates: start: 20150605
  13. INDOMETACIN [Concomitant]
     Active Substance: INDOMETHACIN
     Indication: GASTRITIS PROPHYLAXIS
     Dosage: 1 APPLICATION AS REQUIERED
     Route: 003
     Dates: start: 20160909
  14. SENNOSIDE [Concomitant]
     Active Substance: SENNOSIDES
     Indication: CONSTIPATION
     Dosage: 24.0MG AS REQUIRED
     Route: 048
  15. OFLOXIN [Concomitant]
     Indication: BLEPHARITIS
     Dosage: 3 TABLE SPOON AS REQUIERED
     Route: 047
  16. AMBROXOL [Concomitant]
     Active Substance: AMBROXOL
     Indication: NASOPHARYNGITIS
     Route: 048
     Dates: start: 20160930
  17. LOXOPROFEN [Concomitant]
     Active Substance: LOXOPROFEN
     Indication: CANCER PAIN
     Dosage: 60.0MG AS REQUIRED
     Route: 048
     Dates: start: 20160708
  18. CALFINA [Concomitant]
     Active Substance: ALFACALCIDOL
     Indication: OSTEOPOROSIS
     Route: 048
  19. BONALON [Concomitant]
     Active Substance: ALENDRONATE SODIUM
     Indication: COMPLICATIONS OF TRANSPLANTED LIVER
     Route: 048
  20. SLOW-K [Concomitant]
     Active Substance: POTASSIUM CHLORIDE
     Indication: HYPOKALAEMIA
     Route: 048
  21. TAGRISSO [Suspect]
     Active Substance: OSIMERTINIB
     Indication: NON-SMALL CELL LUNG CANCER
     Route: 048
     Dates: start: 20160910, end: 20161215
  22. FLAVIN ADENINE DINUCLEOTIDE SODIUM [Concomitant]
     Indication: DECREASED APPETITE
     Route: 042
  23. TEARBALANCE [Concomitant]
     Active Substance: HYALURONATE SODIUM
     Indication: BLEPHARITIS
     Dosage: 3.0DF AS REQUIRED
     Route: 047
  24. PHYSIO 140 [Concomitant]
     Indication: DECREASED APPETITE
     Route: 042

REACTIONS (1)
  - Death [Fatal]

NARRATIVE: CASE EVENT DATE: 20170113
